FAERS Safety Report 21045294 (Version 1)
Quarter: 2022Q3

REPORT INFORMATION
  Report Type: Spontaneous
  Country: RU (occurrence: RU)
  Receive Date: 20220706
  Receipt Date: 20220706
  Transmission Date: 20221027
  Serious: Yes (Death, Other)
  Sender: FDA-Public Use
  Company Number: RU-STRIDES ARCOLAB LIMITED-2022SP008266

PATIENT
  Age: 31 Year
  Sex: Male

DRUGS (34)
  1. MYCOPHENOLATE MOFETIL [Suspect]
     Active Substance: MYCOPHENOLATE MOFETIL
     Indication: Prophylaxis against graft versus host disease
     Dosage: UNK (START DATE: 01-JUL-2019)
     Route: 065
  2. TACROLIMUS [Suspect]
     Active Substance: TACROLIMUS
     Indication: Prophylaxis against graft versus host disease
     Dosage: UNK (START DATE: 01-JUL-2019)
     Route: 065
  3. METHOTREXATE [Suspect]
     Active Substance: METHOTREXATE
     Indication: Acute lymphocytic leukaemia
     Dosage: UNK (ADMINISTERED AS PER THE ALL-2009 PROGRAMMED THERAPY PROTOCOL (STOP DATE: ??-FEB-2018))
     Route: 065
  4. METHOTREXATE [Suspect]
     Active Substance: METHOTREXATE
     Dosage: 15 MILLIGRAM (ENDOLUMBAR TRIPLETS THERAPY)
     Route: 037
  5. METHOTREXATE [Suspect]
     Active Substance: METHOTREXATE
     Dosage: UNK (ALL-2009 PROGRAMMED THERAPY PROTOCOL WAS RE-INITIATED (START DATE: ??-AUG-2018))
     Route: 065
  6. METHOTREXATE [Suspect]
     Active Substance: METHOTREXATE
     Dosage: UNK (AS A PART OF NEUROLEUKEMIA (START DATE: ??-APR-2019))
     Route: 065
  7. PREDNISOLONE [Suspect]
     Active Substance: PREDNISOLONE
     Indication: Acute lymphocytic leukaemia
     Dosage: UNK (ADMINISTERED AS PER THE ALL-2009 PROGRAMMED THERAPY PROTOCOL)
     Route: 065
  8. PREDNISOLONE [Suspect]
     Active Substance: PREDNISOLONE
     Dosage: UNK ALL-2009 PROGRAMMED THERAPY PROTOCOL WAS RE-INITIATED (START DATE: ??-AUG-2018)
     Route: 065
  9. CYTARABINE [Suspect]
     Active Substance: CYTARABINE
     Indication: Acute lymphocytic leukaemia
     Dosage: UNK (ADMINISTERED AS PER THE ALL-2009 PROGRAMMED THERAPY PROTOCOL (STOP DATE: ??-FEB-2018)))
     Route: 065
  10. CYTARABINE [Suspect]
     Active Substance: CYTARABINE
     Dosage: 30 MILLIGRAM ENDOLUMBAR TRIPLETS THERAPY
     Route: 037
  11. CYTARABINE [Suspect]
     Active Substance: CYTARABINE
     Dosage: UNK (ALL-2009 PROGRAMMED THERAPY PROTOCOL WAS RE-INITIATED (START DATE: ??-AUG-2018))
     Route: 065
  12. CYTARABINE [Suspect]
     Active Substance: CYTARABINE
     Dosage: UNK (AS A PART OF NEUROLEUKEMIA (START DATE: ??-APR-2019))
     Route: 065
  13. CYTARABINE [Suspect]
     Active Substance: CYTARABINE
     Dosage: UNK (HIGH DOSE, NONMYELOABLATIVE CYTOSTATIC TREATMENT)
     Route: 065
     Dates: start: 2019
  14. DEXAMETHASONE [Suspect]
     Active Substance: DEXAMETHASONE
     Indication: Acute lymphocytic leukaemia
     Dosage: 4 MILLIGRAM ENDOLUMBAR TRIPLETS THERAPY
     Route: 037
  15. DEXAMETHASONE [Suspect]
     Active Substance: DEXAMETHASONE
     Indication: Intestinal obstruction
     Dosage: UNK (AS A PART OF NEUROLEUKEMIA (START DATE: ??-APR-2019))
     Route: 065
  16. DEXAMETHASONE [Suspect]
     Active Substance: DEXAMETHASONE
     Dosage: UNK
     Route: 065
     Dates: start: 2019
  17. CYCLOPHOSPHAMIDE [Suspect]
     Active Substance: CYCLOPHOSPHAMIDE
     Indication: Acute lymphocytic leukaemia
     Dosage: UNK (ADMINISTERED AS PER THE ALL-2009 PROGRAMMED THERAPY PROTOCOL (STOP DATE: ??-FEB-2018))
     Route: 065
  18. CYCLOPHOSPHAMIDE [Suspect]
     Active Substance: CYCLOPHOSPHAMIDE
     Indication: Prophylaxis against graft versus host disease
     Dosage: UNK (ALL-2009 PROGRAMMED THERAPY PROTOCOL WAS RE-INITIATED (START DATE: ??-AUG-2018))
     Route: 065
  19. CYCLOPHOSPHAMIDE [Suspect]
     Active Substance: CYCLOPHOSPHAMIDE
     Dosage: UNK (START DATE: 01-JUL-2019)
     Route: 065
  20. INOTUZUMAB OZOGAMICIN [Suspect]
     Active Substance: INOTUZUMAB OZOGAMICIN
     Indication: Acute lymphocytic leukaemia
     Dosage: UNK (TWO COURSES)
     Route: 065
     Dates: start: 2019
  21. VINCRISTINE [Suspect]
     Active Substance: VINCRISTINE
     Indication: Acute lymphocytic leukaemia
     Dosage: UNK (ADMINISTERED AS PER THE ALL-2009 PROGRAMMED THERAPY PROTOCOL (STOP DATE: ??-FEB-2018))
     Route: 065
  22. VINCRISTINE [Suspect]
     Active Substance: VINCRISTINE
     Dosage: UNK (ALL-2009 PROGRAMMED THERAPY PROTOCOL WAS RE-INITIATED (START DATE: ??-AUG-2018))
     Route: 065
  23. DAUNORUBICIN [Suspect]
     Active Substance: DAUNORUBICIN
     Indication: Acute lymphocytic leukaemia
     Dosage: UNK (ADMINISTERED AS PER THE ALL-2009 PROGRAMMED THERAPY PROTOCOL (STOP DATE: ??-FEB-2018))
     Route: 065
  24. DAUNORUBICIN [Suspect]
     Active Substance: DAUNORUBICIN
     Dosage: UNK ALL-2009 PROGRAMMED THERAPY PROTOCOL WAS RE-INITIATED (START DATE: ??-AUG-2018)
     Route: 065
  25. ASPARAGINASE [Suspect]
     Active Substance: ASPARAGINASE
     Indication: Acute lymphocytic leukaemia
     Dosage: UNK (ADMINISTERED AS PER THE ALL-2009 PROGRAMMED THERAPY PROTOCOL (STOP DATE: ??-FEB-2018))
     Route: 065
  26. ASPARAGINASE [Suspect]
     Active Substance: ASPARAGINASE
     Dosage: UNK ALL-2009 PROGRAMMED THERAPY PROTOCOL WAS RE-INITIATEDALL-2009 PROGRAMMED THERAPY PROTOCOL WAS RE
     Route: 065
  27. MERCAPTOPURINE [Suspect]
     Active Substance: MERCAPTOPURINE
     Indication: Acute lymphocytic leukaemia
     Dosage: UNK (ADMINISTERED AS PER THE ALL-2009 PROGRAMMED THERAPY PROTOCOL (STOP DATE: ??-FEB-2018))
     Route: 065
  28. MERCAPTOPURINE [Suspect]
     Active Substance: MERCAPTOPURINE
     Dosage: UNK ALL-2009 PROGRAMMED THERAPY PROTOCOL WAS RE-INITIATED (START DATE: ??-AUG-2018)
     Route: 065
  29. FLUDARABINE [Suspect]
     Active Substance: FLUDARABINE PHOSPHATE
     Indication: Bone marrow conditioning regimen
     Dosage: UNK (START DATE: 21-JUN-2019)
     Route: 065
  30. FLUDARABINE [Suspect]
     Active Substance: FLUDARABINE PHOSPHATE
     Dosage: UNK (NONMYELOABLATIVE CYTOSTATIC TREATMENT)
     Route: 065
     Dates: start: 2019
  31. BUSULFAN [Suspect]
     Active Substance: BUSULFAN
     Indication: Bone marrow conditioning regimen
     Dosage: UNK (START DATE: 21-JUN-2019)
     Route: 065
  32. MESNA [Concomitant]
     Active Substance: MESNA
     Indication: Acute lymphocytic leukaemia
     Dosage: UNK (ADMINISTERED AS PER THE ALL-2009 PROGRAMMED THERAPY PROTOCOL (STOP DATE: ??-FEB-2018))
     Route: 065
  33. MESNA [Concomitant]
     Active Substance: MESNA
     Dosage: UNK (ALL-2009 PROGRAMMED THERAPY PROTOCOL WAS RE-INITIATED (START DATE: ??-AUG-2018))
     Route: 065
  34. .ALPHA.-LIPOIC ACID [Concomitant]
     Active Substance: .ALPHA.-LIPOIC ACID
     Indication: Urinary retention
     Dosage: UNK (START DATE: ??-???-2019)
     Route: 065

REACTIONS (7)
  - Multiple organ dysfunction syndrome [Fatal]
  - Sepsis [Fatal]
  - Septic shock [Fatal]
  - Klebsiella infection [Fatal]
  - Bone marrow failure [Fatal]
  - Myelopathy [Unknown]
  - Acute graft versus host disease [Recovered/Resolved]

NARRATIVE: CASE EVENT DATE: 20190521
